FAERS Safety Report 9434415 (Version 1)
Quarter: 2013Q3

REPORT INFORMATION
  Report Type: Spontaneous
  Country: DE (occurrence: DE)
  Receive Date: 20130725
  Receipt Date: 20130725
  Transmission Date: 20140515
  Serious: Yes (Death, Hospitalization)
  Sender: FDA-Public Use
  Company Number: 1302-216

PATIENT
  Age: 83 Year
  Sex: Male

DRUGS (3)
  1. EYLEA [Suspect]
     Indication: AGE-RELATED MACULAR DEGENERATION
     Route: 031
     Dates: start: 20130204
  2. PLAVIX (CLOPIDOGREL BISULFATE) [Concomitant]
  3. WARFARIN [Concomitant]

REACTIONS (2)
  - Cardiac arrest [None]
  - Subdural haematoma [None]
